FAERS Safety Report 8001604-X (Version None)
Quarter: 2011Q4

REPORT INFORMATION
  Report Type: 
  Country: None (occurrence: None)
  Receive Date: 20111222
  Receipt Date: 20111215
  Transmission Date: 20120403
  Serious: Yes (Other)
  Sender: FDA-Public Use
  Company Number: US-JNJFOC-20111000029

PATIENT
  Sex: Male

DRUGS (1)
  1. LEVAQUIN [Suspect]
     Indication: LUNG DISORDER
     Route: 048

REACTIONS (4)
  - TENDON RUPTURE [None]
  - JOINT INJURY [None]
  - ROTATOR CUFF SYNDROME [None]
  - LIGAMENT RUPTURE [None]
